FAERS Safety Report 19831234 (Version 1)
Quarter: 2021Q3

REPORT INFORMATION
  Report Type: Spontaneous
  Country: US (occurrence: US)
  Receive Date: 20210915
  Receipt Date: 20210915
  Transmission Date: 20211014
  Serious: Yes (Other)
  Sender: FDA-Public Use
  Company Number: None

PATIENT
  Age: 59 Year
  Sex: Male
  Weight: 88.65 kg

DRUGS (1)
  1. CHANTIX [Suspect]
     Active Substance: VARENICLINE TARTRATE
     Indication: EX-TOBACCO USER
     Dosage: ?          QUANTITY:56 TABLET(S);?
     Route: 048
     Dates: start: 20201220, end: 20210907

REACTIONS (5)
  - Pain in extremity [None]
  - Cough [None]
  - Bone pain [None]
  - Throat irritation [None]
  - Peripheral swelling [None]

NARRATIVE: CASE EVENT DATE: 20210106
